FAERS Safety Report 8953507 (Version 15)
Quarter: 2015Q2

REPORT INFORMATION
  Report Type: Report from Study
  Country: US (occurrence: US)
  Receive Date: 20121206
  Receipt Date: 20150618
  Transmission Date: 20150821
  Serious: Yes (Other)
  Sender: FDA-Public Use
  Company Number: US-GLAXOSMITHKLINE-A1003555A

PATIENT
  Age: 38 Year
  Sex: Female

DRUGS (13)
  1. WARFARIN [Concomitant]
     Active Substance: WARFARIN
  2. DELTASONE [Concomitant]
     Active Substance: PREDNISONE
     Indication: SYSTEMIC LUPUS ERYTHEMATOSUS
     Route: 048
     Dates: start: 20121220
  3. ASPIRIN. [Concomitant]
     Active Substance: ASPIRIN
     Indication: COAGULOPATHY
     Route: 048
     Dates: start: 20120701
  4. SYNTHROID [Concomitant]
     Active Substance: LEVOTHYROXINE SODIUM
     Indication: HYPOTHYROIDISM
     Route: 048
     Dates: start: 20040101
  5. LOVENOX [Concomitant]
     Active Substance: ENOXAPARIN SODIUM
     Indication: COAGULOPATHY
     Route: 058
     Dates: start: 20120825
  6. BELIMUMAB [Suspect]
     Active Substance: BELIMUMAB
     Indication: SYSTEMIC LUPUS ERYTHEMATOSUS
     Dosage: 800MG MONTHLY
     Route: 042
     Dates: start: 20110701
  7. PLAQUENIL [Concomitant]
     Active Substance: HYDROXYCHLOROQUINE SULFATE
     Indication: SYSTEMIC LUPUS ERYTHEMATOSUS
     Route: 048
     Dates: start: 20020401
  8. BENADRYL [Concomitant]
     Active Substance: DIPHENHYDRAMINE HYDROCHLORIDE
     Indication: PREMEDICATION
     Route: 042
  9. PRENATAL [Concomitant]
     Active Substance: VITAMINS
     Dosage: PRENATAL NO. 40/IRON/FA/DHA CAPSULE:  27 MG IRON; 800 MCG FA; 250 MG DHA
     Route: 048
  10. ANTI-MALARIAL [Concomitant]
  11. HEPARIN [Concomitant]
     Active Substance: HEPARIN SODIUM
  12. PREDNISONE. [Concomitant]
     Active Substance: PREDNISONE
     Indication: SYSTEMIC LUPUS ERYTHEMATOSUS
     Route: 048
  13. TYLENOL [Concomitant]
     Active Substance: ACETAMINOPHEN
     Indication: PREMEDICATION
     Dosage: TAKE 650 MG PRIOR TO BENLYSTA
     Route: 048

REACTIONS (10)
  - Pancytopenia [Unknown]
  - Neutropenia [Unknown]
  - Liver function test abnormal [Recovering/Resolving]
  - Exposure during pregnancy [Unknown]
  - Aspartate aminotransferase increased [Recovering/Resolving]
  - Breast feeding [Recovered/Resolved]
  - White blood cell count decreased [Unknown]
  - Alanine aminotransferase increased [Recovering/Resolving]
  - Neutrophil count abnormal [Unknown]
  - Live birth [Unknown]

NARRATIVE: CASE EVENT DATE: 20130808
